FAERS Safety Report 12654012 (Version 2)
Quarter: 2016Q3

REPORT INFORMATION
  Report Type: Spontaneous
  Country: FI (occurrence: FI)
  Receive Date: 20160816
  Receipt Date: 20160830
  Transmission Date: 20161109
  Serious: Yes (Other)
  Sender: FDA-Public Use
  Company Number: FI-009507513-1608FIN006922

PATIENT
  Age: 47 Year
  Sex: Female

DRUGS (8)
  1. MAREVAN [Suspect]
     Active Substance: WARFARIN SODIUM
     Indication: DEEP VEIN THROMBOSIS
  2. ASMANEX [Suspect]
     Active Substance: MOMETASONE FUROATE
     Indication: ASTHMA
     Dosage: 400 MCG, 1-2 TIMES A DAY, TOTAL DAILY DOSE 400-800 MG
     Route: 055
     Dates: start: 2012
  3. VITAMINS (UNSPECIFIED) [Concomitant]
     Active Substance: VITAMINS
     Dosage: UNK
  4. ASMANEX [Suspect]
     Active Substance: MOMETASONE FUROATE
     Indication: ASTHMA
     Dosage: 200 MCG, 1-2 TIMES A DAY, TOTAL DAILY DOSE 200-400 MG
     Route: 055
     Dates: start: 2012
  5. BUVENTOL [Concomitant]
     Indication: ASTHMA
     Dosage: UNK
     Route: 055
  6. VENTOLIN [Concomitant]
     Active Substance: ALBUTEROL SULFATE
     Indication: ASTHMA
     Route: 055
  7. CORTISONE ACETATE. [Concomitant]
     Active Substance: CORTISONE ACETATE
     Indication: ASTHMA
     Dosage: UNK, FORMULATION PER OS
     Route: 048
  8. MAREVAN [Suspect]
     Active Substance: WARFARIN SODIUM
     Indication: PERIPHERAL EMBOLISM
     Dosage: UNK
     Dates: start: 201404, end: 201408

REACTIONS (6)
  - Angina bullosa haemorrhagica [Not Recovered/Not Resolved]
  - Paraesthesia oral [Not Recovered/Not Resolved]
  - Vomiting [Recovered/Resolved]
  - Peripheral embolism [Recovered/Resolved]
  - Deep vein thrombosis [Recovered/Resolved]
  - Haematoma [Not Recovered/Not Resolved]

NARRATIVE: CASE EVENT DATE: 2012
